FAERS Safety Report 5148717-8 (Version None)
Quarter: 2006Q4

REPORT INFORMATION
  Report Type: 
  Country: None (occurrence: None)
  Receive Date: 20061107
  Receipt Date: 20061025
  Transmission Date: 20070319
  Serious: Yes (Hospitalization)
  Sender: FDA-Public Use
  Company Number: 2006BI014378

PATIENT
  Age: 33 Year
  Sex: Female

DRUGS (1)
  1. AVONEX [Suspect]
     Indication: MULTIPLE SCLEROSIS
     Dosage: 30 UG QW IM
     Route: 030
     Dates: start: 20061004, end: 20061004

REACTIONS (4)
  - EYE ROLLING [None]
  - FALL [None]
  - HYPERSENSITIVITY [None]
  - MUSCULOSKELETAL STIFFNESS [None]
